FAERS Safety Report 10208839 (Version 2)
Quarter: 2014Q2

REPORT INFORMATION
  Report Type: Spontaneous
  Country: DE (occurrence: DE)
  Receive Date: 20140530
  Receipt Date: 20140611
  Transmission Date: 20141212
  Serious: Yes (Hospitalization)
  Sender: FDA-Public Use
  Company Number: DE-ELI_LILLY_AND_COMPANY-DE201405008527

PATIENT
  Sex: Male

DRUGS (11)
  1. CIALIS [Suspect]
     Indication: ERECTILE DYSFUNCTION
     Dosage: 5 MG, QD
     Route: 048
  2. SIMVASTATIN [Suspect]
     Dosage: 20 MG, EACH EVENING
  3. TESTOSTERONE [Concomitant]
  4. ASS + C [Concomitant]
     Dosage: 100 MG, QD
  5. IVABRADINE [Concomitant]
     Dosage: 7.5 MG, QD
  6. RAMIPRIL [Concomitant]
     Dosage: 5 MG, QD
  7. HCT [Concomitant]
     Dosage: 25 MG, QD
  8. OMEPRAZOLE [Concomitant]
     Dosage: 20 MG, QD
  9. VALSARTAN [Concomitant]
     Dosage: 80 MG, QD
  10. AMLODIPIN                          /00972401/ [Concomitant]
     Dosage: 10 MG, QD
  11. ALISKIREN [Concomitant]
     Dosage: 150 MG, QD

REACTIONS (6)
  - Rhabdomyolysis [Unknown]
  - Renal failure acute [Unknown]
  - Chromaturia [Unknown]
  - Blood creatine phosphokinase increased [Unknown]
  - Dyspnoea [Recovering/Resolving]
  - Hypokalaemia [Recovering/Resolving]
